FAERS Safety Report 5395801-X (Version None)
Quarter: 2007Q3

REPORT INFORMATION
  Report Type: 
  Country: None (occurrence: None)
  Receive Date: 20070724
  Receipt Date: 20070712
  Transmission Date: 20080115
  Serious: Yes (Hospitalization)
  Sender: FDA-Public Use
  Company Number: US-PFIZER INC-2006113156

PATIENT
  Sex: Female
  Weight: 65.8 kg

DRUGS (21)
  1. CELEBREX [Suspect]
     Indication: RHEUMATOID ARTHRITIS
     Dates: start: 20011003, end: 20040930
  2. BEXTRA [Suspect]
     Indication: RHEUMATOID ARTHRITIS
     Dates: start: 20011101, end: 20040930
  3. VIOXX [Suspect]
     Indication: RHEUMATOID ARTHRITIS
     Route: 048
     Dates: start: 19990520, end: 20040930
  4. ASPIRIN [Concomitant]
  5. CARISOPRODOL [Concomitant]
  6. DIAZEPAM [Concomitant]
  7. DURAGESIC-100 [Concomitant]
  8. HYDROCODONE BITARTRATE [Concomitant]
  9. METHADONE HCL [Concomitant]
  10. METHYLPREDNISOLONE [Concomitant]
  11. MOBIC [Concomitant]
  12. MORPHINE [Concomitant]
  13. NAPROXEN [Concomitant]
  14. NEURONTIN [Concomitant]
  15. OXYCODONE HCL [Concomitant]
  16. PERCOCET [Concomitant]
  17. OXYCONTIN [Concomitant]
  18. PERCOCET [Concomitant]
  19. PREDNISOLONE [Concomitant]
  20. SKELAXIN [Concomitant]
  21. TRAMADOL HCL [Concomitant]

REACTIONS (2)
  - PULMONARY EMBOLISM [None]
  - THROMBOSIS [None]
